FAERS Safety Report 5136045-6 (Version None)
Quarter: 2006Q4

REPORT INFORMATION
  Report Type: 
  Country: None (occurrence: None)
  Receive Date: 20061023
  Receipt Date: 20061011
  Transmission Date: 20070319
  Serious: No
  Sender: FDA-Public Use
  Company Number: 2006AL003117

PATIENT
  Age: 47 Year
  Sex: Male
  Weight: 68.0396 kg

DRUGS (3)
  1. PERMETHRIN [Suspect]
     Indication: ACARODERMATITIS
     Dosage: QD; TOP
     Route: 061
     Dates: start: 20060901, end: 20060901
  2. LORAZEPAM [Concomitant]
  3. RID MOUSSE [Concomitant]

REACTIONS (16)
  - APPLICATION SITE IRRITATION [None]
  - BALANCE DISORDER [None]
  - BURNING SENSATION [None]
  - DIZZINESS [None]
  - DYSARTHRIA [None]
  - DYSPNOEA [None]
  - HEADACHE [None]
  - MIOSIS [None]
  - MUSCLE TWITCHING [None]
  - NERVOUS SYSTEM DISORDER [None]
  - RASH [None]
  - SKIN DISCOLOURATION [None]
  - SKIN DISORDER [None]
  - SWELLING FACE [None]
  - SWOLLEN TONGUE [None]
  - VISION BLURRED [None]
